FAERS Safety Report 17852212 (Version 3)
Quarter: 2020Q3

REPORT INFORMATION
  Report Type: Spontaneous
  Country: BR (occurrence: BR)
  Receive Date: 20200602
  Receipt Date: 20200717
  Transmission Date: 20201103
  Serious: No
  Sender: FDA-Public Use
  Company Number: BR-TOLMAR, INC.-20BR021484

PATIENT
  Age: 43 Year
  Sex: Male

DRUGS (1)
  1. ELIGARD [Suspect]
     Active Substance: LEUPROLIDE ACETATE
     Indication: PROSTATE CANCER
     Dosage: 22.5 MG
     Route: 065
     Dates: start: 20200525

REACTIONS (5)
  - Needle issue [None]
  - Syringe issue [None]
  - Product administration error [None]
  - Device leakage [None]
  - Accidental underdose [None]

NARRATIVE: CASE EVENT DATE: 20200525
